FAERS Safety Report 26145263 (Version 1)
Quarter: 2025Q4

REPORT INFORMATION
  Report Type: Report from Study
  Country: US (occurrence: US)
  Receive Date: 20251211
  Receipt Date: 20251211
  Transmission Date: 20260117
  Serious: Yes (Hospitalization, Other)
  Sender: PFIZER
  Company Number: US-PFIZER INC-202500239106

PATIENT
  Age: 66 Year
  Sex: Male

DRUGS (4)
  1. BRAFTOVI [Suspect]
     Active Substance: ENCORAFENIB
     Indication: Malignant melanoma
     Dosage: 450 MG, TAKE 6 CAPSULES DAILY
     Dates: start: 2025, end: 2025
  2. BRAFTOVI [Suspect]
     Active Substance: ENCORAFENIB
     Dosage: UNK, (HALF DOSE)
     Dates: start: 2025
  3. MEKTOVI [Suspect]
     Active Substance: BINIMETINIB
     Indication: Malignant melanoma
     Dosage: 45 MG, 2X/DAY (TAKE 3 TABLETS EVERY 12 HOURS)
     Dates: start: 2025, end: 2025
  4. MEKTOVI [Suspect]
     Active Substance: BINIMETINIB
     Dosage: UNK, (HALF DOSE)
     Dates: start: 2025

REACTIONS (5)
  - Sepsis [Unknown]
  - Condition aggravated [Unknown]
  - Gallbladder operation [Unknown]
  - Klebsiella infection [Unknown]
  - Swelling [Unknown]

NARRATIVE: CASE EVENT DATE: 20250101
